FAERS Safety Report 9642979 (Version 2)
Quarter: 2013Q4

REPORT INFORMATION
  Report Type: Spontaneous
  Country: US (occurrence: US)
  Receive Date: 20131024
  Receipt Date: 20131025
  Transmission Date: 20140711
  Serious: No
  Sender: FDA-Public Use
  Company Number: US-009507513-1310USA010788

PATIENT
  Sex: 0

DRUGS (1)
  1. PROVENTIL [Suspect]
     Dosage: INHALE 2 PUFFS BY MOUTH EVERY 4 TO 6 HOURS
     Route: 048
     Dates: start: 20130925

REACTIONS (4)
  - Drug dose omission [Unknown]
  - Incorrect route of drug administration [Unknown]
  - Product quality issue [Unknown]
  - No adverse event [Unknown]
